FAERS Safety Report 4534124-5 (Version None)
Quarter: 2004Q4

REPORT INFORMATION
  Report Type: 
  Country: None (occurrence: None)
  Receive Date: 20041214
  Receipt Date: 20040827
  Transmission Date: 20050328
  Serious: No
  Sender: FDA-Public Use
  Company Number: USA040876740

PATIENT
  Age: 67 Year
  Sex: Male

DRUGS (9)
  1. CIALIS [Suspect]
     Indication: ERECTILE DYSFUNCTION
     Dosage: 20 MG
     Dates: start: 20040826
  2. LIPITOR [Concomitant]
  3. ZOLOFT [Concomitant]
  4. NORVASC [Concomitant]
  5. ATENOLOL [Concomitant]
  6. HYDROXYZINE [Concomitant]
  7. AMITRIPTYLINE [Concomitant]
  8. XANAX (ALPRAZOLAM DUM) [Concomitant]
  9. ASPIRIN [Concomitant]

REACTIONS (2)
  - ANORGASMIA [None]
  - HEADACHE [None]
